FAERS Safety Report 6784583-2 (Version None)
Quarter: 2010Q2

REPORT INFORMATION
  Report Type: 
  Country: None (occurrence: None)
  Receive Date: 20100622
  Receipt Date: 20100611
  Transmission Date: 20101027
  Serious: Yes (Other)
  Sender: FDA-Public Use
  Company Number: A0850667A

PATIENT
  Age: 83 Year
  Sex: Female

DRUGS (3)
  1. ADVAIR DISKUS 100/50 [Suspect]
     Indication: CHRONIC OBSTRUCTIVE PULMONARY DISEASE
     Dosage: 1APP TWICE PER DAY
     Route: 055
  2. FLOVENT [Suspect]
     Indication: CHRONIC OBSTRUCTIVE PULMONARY DISEASE
     Route: 055
     Dates: start: 20070301, end: 20070401
  3. ALBUTEROL [Concomitant]

REACTIONS (3)
  - CATARACT [None]
  - DRUG INEFFECTIVE [None]
  - EYE PRURITUS [None]
